FAERS Safety Report 16805312 (Version 1)
Quarter: 2019Q3

REPORT INFORMATION
  Report Type: Spontaneous
  Country: US (occurrence: US)
  Receive Date: 20190913
  Receipt Date: 20190913
  Transmission Date: 20191005
  Serious: No
  Sender: FDA-Public Use
  Company Number: PHEH2019US037693

PATIENT
  Sex: Male

DRUGS (2)
  1. MEKINIST [Suspect]
     Active Substance: TRAMETINIB DIMETHYL SULFOXIDE
     Indication: ANAEMIA
  2. MEKINIST [Suspect]
     Active Substance: TRAMETINIB DIMETHYL SULFOXIDE
     Indication: CHRONIC KIDNEY DISEASE
     Dosage: 0.5 MG, QD
     Route: 048

REACTIONS (5)
  - Dry skin [Unknown]
  - Oral pain [Unknown]
  - Nasal dryness [Unknown]
  - Epistaxis [Unknown]
  - Nail growth abnormal [Unknown]
